FAERS Safety Report 7228530-8 (Version None)
Quarter: 2011Q1

REPORT INFORMATION
  Report Type: 
  Country: None (occurrence: None)
  Receive Date: 20110117
  Receipt Date: 20110105
  Transmission Date: 20110831
  Serious: Yes (Hospitalization)
  Sender: FDA-Public Use
  Company Number: US-BIOGENIDEC-2011BI000595

PATIENT
  Age: 55 Year
  Sex: Female

DRUGS (10)
  1. HYDROXYZINE [Concomitant]
     Route: 048
  2. AMOXICILLIN [Concomitant]
     Route: 048
     Dates: start: 20101130, end: 20101209
  3. TYSABRI [Suspect]
     Indication: MULTIPLE SCLEROSIS
     Route: 042
     Dates: start: 20070409, end: 20101216
  4. ANTIVERT [Concomitant]
     Route: 048
     Dates: start: 20101130
  5. GOLYTELY [Concomitant]
     Route: 048
     Dates: start: 20101022
  6. OPANA ER [Concomitant]
     Route: 048
  7. QUALAQUIN [Concomitant]
     Route: 048
  8. SINGULAIR [Concomitant]
     Route: 048
  9. CLARITIN [Concomitant]
     Route: 048
  10. CLAVULANATE POTASSIUM [Concomitant]
     Route: 048
     Dates: start: 20101130, end: 20101209

REACTIONS (1)
  - PROGRESSIVE MULTIFOCAL LEUKOENCEPHALOPATHY [None]
